FAERS Safety Report 6895740-9 (Version None)
Quarter: 2010Q3

REPORT INFORMATION
  Report Type: 
  Country: None (occurrence: None)
  Receive Date: 20100802
  Receipt Date: 20100705
  Transmission Date: 20110219
  Serious: Yes (Other)
  Sender: FDA-Public Use
  Company Number: KR-SANOFI-AVENTIS-2010SA044655

PATIENT
  Age: 7 Day
  Sex: Male
  Weight: 3.4 kg

DRUGS (1)
  1. LANTUS [Suspect]
     Indication: DIABETES MELLITUS
     Route: 064
     Dates: start: 20100405, end: 20100601

REACTIONS (2)
  - DRUG EXPOSURE DURING PREGNANCY [None]
  - HYDRONEPHROSIS [None]
